FAERS Safety Report 22151678 (Version 4)
Quarter: 2023Q4

REPORT INFORMATION
  Report Type: Report from Study
  Country: US (occurrence: US)
  Receive Date: 20230329
  Receipt Date: 20231031
  Transmission Date: 20240109
  Serious: Yes (Other)
  Sender: FDA-Public Use
  Company Number: US-ABBVIE-4706788

PATIENT
  Sex: Female

DRUGS (2)
  1. RINVOQ [Suspect]
     Active Substance: UPADACITINIB
     Indication: Rheumatoid arthritis
     Dosage: FORM STRENGTH: 15 MILLIGRAM?LAST ADMIN DATE 2023
     Route: 048
     Dates: start: 20230217
  2. RINVOQ [Suspect]
     Active Substance: UPADACITINIB
     Indication: Rheumatoid arthritis
     Dosage: FIRST ADMIN DATE-2023, FORM STRENGTH: 15 MILLIGRAM
     Route: 048
     Dates: end: 202310

REACTIONS (20)
  - Surgery [Unknown]
  - General physical health deterioration [Unknown]
  - Grip strength decreased [Unknown]
  - Pain [Recovering/Resolving]
  - Mobility decreased [Unknown]
  - Procedural pain [Unknown]
  - Blood cholesterol increased [Unknown]
  - Loss of personal independence in daily activities [Unknown]
  - Drug ineffective [Unknown]
  - Rhinorrhoea [Recovered/Resolved]
  - General physical health deterioration [Recovered/Resolved]
  - Joint stiffness [Not Recovered/Not Resolved]
  - Abdominal wall operation [Unknown]
  - Acne [Unknown]
  - Nausea [Recovered/Resolved]
  - Pruritus [Unknown]
  - Arthralgia [Not Recovered/Not Resolved]
  - Joint swelling [Not Recovered/Not Resolved]
  - Dry skin [Unknown]
  - Headache [Recovered/Resolved]

NARRATIVE: CASE EVENT DATE: 20230101
